FAERS Safety Report 20182404 (Version 1)
Quarter: 2021Q4

REPORT INFORMATION
  Report Type: Spontaneous
  Country: US (occurrence: None)
  Receive Date: 20211214
  Receipt Date: 20211214
  Transmission Date: 20220303
  Serious: Yes (Disabling)
  Sender: FDA-Public Use
  Company Number: None

PATIENT
  Age: 59 Year
  Sex: Female
  Weight: 105.75 kg

DRUGS (1)
  1. TALTZ [Suspect]
     Active Substance: IXEKIZUMAB
     Indication: Palmoplantar pustulosis
     Dosage: OTHER QUANTITY : 1 INJECTION(S);?OTHER FREQUENCY : BIWEEKLY;?
     Route: 030
     Dates: start: 20210803, end: 20211026

REACTIONS (2)
  - Rash [None]
  - Skin lesion [None]

NARRATIVE: CASE EVENT DATE: 20211101
